FAERS Safety Report 5140147-8 (Version None)
Quarter: 2006Q4

REPORT INFORMATION
  Report Type: 
  Country: None (occurrence: None)
  Receive Date: 20061024
  Receipt Date: 20061004
  Transmission Date: 20070319
  Serious: Yes (Other)
  Sender: FDA-Public Use
  Company Number: US200610001116

PATIENT
  Sex: Male

DRUGS (2)
  1. FORTEO [Suspect]
     Indication: OSTEOPOROSIS
     Dates: start: 20040101, end: 20060101
  2. FORTEO [Concomitant]

REACTIONS (5)
  - FOOT FRACTURE [None]
  - HIP FRACTURE [None]
  - ILL-DEFINED DISORDER [None]
  - LOSS OF EMPLOYMENT [None]
  - LOWER LIMB FRACTURE [None]
